FAERS Safety Report 8179199-X (Version None)
Quarter: 2012Q1

REPORT INFORMATION
  Report Type: 
  Country: None (occurrence: None)
  Receive Date: 20120227
  Receipt Date: 20120214
  Transmission Date: 20120608
  Serious: Yes (Hospitalization, Other)
  Sender: FDA-Public Use
  Company Number: 1157185

PATIENT
  Age: 13 Year
  Sex: Female

DRUGS (8)
  1. OMEPRAZOLE [Concomitant]
  2. PHENOXYMETHYLPENICILLIN [Concomitant]
  3. LACTULOSE [Concomitant]
  4. FOLIC ACID [Concomitant]
  5. DEFEROXAMINE MESYLATE [Suspect]
     Indication: PRODUCT USED FOR UNKNOWN INDICATION
     Dosage: SUBCUTANEOUS, INTRAVENOUS (NOT OTHERWISE SPECIFIED)
     Route: 058
  6. EXJADE [Suspect]
     Indication: SICKLE CELL ANAEMIA
     Dosage: 1750 MG MILLIGRAM(S), 1500 MG MILLIGRAM(S)
  7. EXJADE [Suspect]
     Indication: IRON OVERLOAD
     Dosage: 1750 MG MILLIGRAM(S), 1500 MG MILLIGRAM(S)
  8. ACETAMINOPHEN [Concomitant]

REACTIONS (21)
  - BLOOD BILIRUBIN ABNORMAL [None]
  - ABDOMINAL TENDERNESS [None]
  - ABDOMINAL DISCOMFORT [None]
  - CONSTIPATION [None]
  - GASTRITIS [None]
  - RASH [None]
  - DECREASED APPETITE [None]
  - SICKLE CELL ANAEMIA WITH CRISIS [None]
  - NAUSEA [None]
  - C-REACTIVE PROTEIN INCREASED [None]
  - RETICULOCYTE COUNT ABNORMAL [None]
  - FOETAL HAEMOGLOBIN INCREASED [None]
  - LIVER FUNCTION TEST ABNORMAL [None]
  - WHITE BLOOD CELL COUNT INCREASED [None]
  - ABDOMINAL PAIN [None]
  - DEHYDRATION [None]
  - LISTLESS [None]
  - DOUBLE HETEROZYGOUS SICKLING DISORDERS [None]
  - VOMITING [None]
  - SERUM FERRITIN INCREASED [None]
  - IRON OVERLOAD [None]
